APPROVED DRUG PRODUCT: DEXTROSE 10% IN PLASTIC CONTAINER
Active Ingredient: DEXTROSE
Strength: 10GM/100ML
Dosage Form/Route: INJECTABLE;INJECTION
Application: N018080 | Product #001 | TE Code: AP
Applicant: OTSUKA ICU MEDICAL LLC
Approved: Approved Prior to Jan 1, 1982 | RLD: Yes | RS: Yes | Type: RX